FAERS Safety Report 4352902-2 (Version None)
Quarter: 2004Q2

REPORT INFORMATION
  Report Type: 
  Country: None (occurrence: None)
  Receive Date: 20040430
  Receipt Date: 20040310
  Transmission Date: 20050107
  Serious: No
  Sender: FDA-Public Use
  Company Number: 205024

PATIENT
  Age: 46 Year
  Sex: Male
  Weight: 120.6 kg

DRUGS (9)
  1. XOLAIR [Suspect]
     Indication: ASTHMA
     Dosage: 225 MG, Q2W, SUBCUTANEOUS; 450 MG, SINGLE, SUBCUTANEOUS
     Route: 058
     Dates: start: 20040226, end: 20040226
  2. XOLAIR [Suspect]
     Indication: ASTHMA
     Dosage: 225 MG, Q2W, SUBCUTANEOUS; 450 MG, SINGLE, SUBCUTANEOUS
     Route: 058
     Dates: start: 20040114
  3. ALBUTEROL (ALBUTEROL SULFATE, ALBUTEROL) [Concomitant]
  4. NASONEX [Concomitant]
  5. SINGULAIR [Concomitant]
  6. ACCUPRIL [Concomitant]
  7. ZYRTEC [Concomitant]
  8. ADVAIR (FLUTICASON PROPIONATE, SALMETEROL XINAFOATE) [Concomitant]
  9. PROVENTIL (ALBUTEROL, ALBUTEROL SULFATE) [Concomitant]

REACTIONS (2)
  - ACCIDENTAL OVERDOSE [None]
  - PARAESTHESIA [None]
